FAERS Safety Report 26129992 (Version 2)
Quarter: 2025Q4

REPORT INFORMATION
  Report Type: Spontaneous
  Country: EU (occurrence: EU)
  Receive Date: 20251208
  Receipt Date: 20251221
  Transmission Date: 20260118
  Serious: Yes (Other)
  Sender: VIIV
  Company Number: None

PATIENT
  Age: 41 Year
  Sex: Male

DRUGS (4)
  1. CABOTEGRAVIR [Suspect]
     Active Substance: CABOTEGRAVIR
     Indication: HIV infection
     Dosage: 600 MG, Q2M (1 INJECTION OF CAB 200MG/ML AND 1 INJECTION OF RPV 900MG/3ML EVERY 2 MONTHS)
  2. CABOTEGRAVIR [Suspect]
     Active Substance: CABOTEGRAVIR
  3. CABOTEGRAVIR [Suspect]
     Active Substance: CABOTEGRAVIR
  4. RILPIVIRINE [Suspect]
     Active Substance: RILPIVIRINE
     Indication: HIV infection
     Dosage: 900 MG, Q2M (1 INJECTION OF CAB 200MG/ML AND 1 INJECTION OF RPV 900MG/3ML EVERY 2 MONTHS)

REACTIONS (4)
  - Arthralgia [Recovered/Resolved]
  - Pruritus [Recovered/Resolved]
  - Paraesthesia [Recovered/Resolved]
  - Pruritus [Recovered/Resolved]
